FAERS Safety Report 4754202-5 (Version None)
Quarter: 2005Q3

REPORT INFORMATION
  Report Type: 
  Country: None (occurrence: None)
  Receive Date: 20050826
  Receipt Date: 20050824
  Transmission Date: 20060218
  Serious: Yes (Hospitalization)
  Sender: FDA-Public Use
  Company Number: DE-SANOFI-SYNTHELABO-F01200501646

PATIENT
  Sex: Female

DRUGS (4)
  1. ELOXATIN [Suspect]
     Indication: COLORECTAL CANCER METASTATIC
     Dates: start: 20050115
  2. BEVACIZUMAB [Suspect]
     Indication: COLORECTAL CANCER METASTATIC
     Dosage: 375MG 1 X PER 2 WEEK
     Route: 042
     Dates: start: 20050725
  3. LEUCOVORIN [Suspect]
     Indication: COLORECTAL CANCER METASTATIC
     Dosage: 360MG 1 X PER 2 WEEK
     Dates: start: 20050115
  4. 5-FU [Suspect]
     Indication: COLORECTAL CANCER METASTATIC
     Dosage: 700MG BOLUS AND 1000MG INFUSION Q2W
     Route: 042
     Dates: start: 20050115

REACTIONS (2)
  - FALL [None]
  - SYNCOPE [None]
